FAERS Safety Report 7570394-7 (Version None)
Quarter: 2011Q2

REPORT INFORMATION
  Report Type: 
  Country: None (occurrence: None)
  Receive Date: 20110622
  Receipt Date: 20110622
  Transmission Date: 20111010
  Serious: Yes (Hospitalization)
  Sender: FDA-Public Use
  Company Number: None

PATIENT

DRUGS (1)
  1. SODIUM CHLORIDE [Suspect]
     Dosage: IV
     Route: 042
     Dates: start: 20110621, end: 20110621

REACTIONS (2)
  - URTICARIA [None]
  - PRODUCT PHYSICAL ISSUE [None]
